FAERS Safety Report 6178176-8 (Version None)
Quarter: 2009Q2

REPORT INFORMATION
  Report Type: 
  Country: None (occurrence: None)
  Receive Date: 20090504
  Receipt Date: 20090327
  Transmission Date: 20091009
  Serious: Yes (Hospitalization)
  Sender: FDA-Public Use
  Company Number: PHBS2006BR18925

PATIENT
  Sex: Male
  Weight: 21 kg

DRUGS (10)
  1. TRILEPTAL [Suspect]
     Indication: CONVULSION
     Dosage: 5 ML, Q12H
     Route: 048
     Dates: start: 20061001
  2. TRILEPTAL [Suspect]
     Dosage: 7.5 ML, Q12H
     Route: 048
     Dates: start: 20061130
  3. TRILEPTAL [Suspect]
     Dosage: 8.5 ML, Q12H
     Route: 048
  4. TRILEPTAL [Suspect]
     Indication: EPILEPSY
     Dosage: 450 MG, BID
     Route: 048
  5. TRILEPTAL [Suspect]
     Dosage: 300 MG, 1 TABLET AND A HALF IN THE MORNING AND 1 TABLET AND A HALF AT NIGHT
     Route: 048
  6. FLUNARIZINE DIHYDROCHLORIDE [Suspect]
     Indication: NERVOUS SYSTEM DISORDER
     Dosage: 15 DROPS DAILY
     Route: 048
  7. FLUNARIZINE DIHYDROCHLORIDE [Suspect]
     Dosage: 1 DROP EVERY FIVE DAYS
     Route: 048
  8. TOFRANIL [Concomitant]
     Route: 048
  9. GARDENAL [Concomitant]
     Indication: NERVOUS SYSTEM DISORDER
     Dosage: 80 DRP, DAILY
     Route: 048
  10. GARDENAL [Concomitant]
     Dosage: 40 DRP, AT NIGHT

REACTIONS (21)
  - ABDOMINAL DISTENSION [None]
  - ABDOMINAL PAIN [None]
  - AGITATION [None]
  - CONSTIPATION [None]
  - CONVULSION [None]
  - DIARRHOEA [None]
  - DIZZINESS [None]
  - FALL [None]
  - HEADACHE [None]
  - HYPERHIDROSIS [None]
  - INCREASED APPETITE [None]
  - NAUSEA [None]
  - NERVOUSNESS [None]
  - PHARYNGITIS [None]
  - PYREXIA [None]
  - RETINAL DEGENERATION [None]
  - SLEEP DISORDER [None]
  - SOMNOLENCE [None]
  - VISUAL IMPAIRMENT [None]
  - VOMITING [None]
  - WEIGHT INCREASED [None]
